FAERS Safety Report 4286104-5 (Version None)
Quarter: 2004Q1

REPORT INFORMATION
  Report Type: 
  Country: None (occurrence: None)
  Receive Date: 20040120
  Receipt Date: 20030811
  Transmission Date: 20041129
  Serious: Yes (Other)
  Sender: FDA-Public Use
  Company Number: ENZ-ABE-131

PATIENT
  Sex: Male

DRUGS (5)
  1. ABELCET [Suspect]
     Indication: ASPERGILLOSIS
     Dosage: 350 MG DAILY IV
     Route: 042
     Dates: start: 20030801
  2. SYNERID [Concomitant]
  3. ACYCLOVIR [Concomitant]
  4. PRIMAXIN [Concomitant]
  5. NEUPOGEN [Concomitant]

REACTIONS (2)
  - INFUSION RELATED REACTION [None]
  - PYREXIA [None]
